FAERS Safety Report 7875608-1 (Version None)
Quarter: 2011Q4

REPORT INFORMATION
  Report Type: 
  Country: None (occurrence: None)
  Receive Date: 20111031
  Receipt Date: 20111024
  Transmission Date: 20120403
  Serious: Yes (Other)
  Sender: FDA-Public Use
  Company Number: US-AMGEN-USASP2011053286

PATIENT
  Sex: Female

DRUGS (1)
  1. NPLATE [Suspect]
     Indication: IDIOPATHIC THROMBOCYTOPENIC PURPURA
     Dosage: 9 MUG/KG, UNK
     Dates: start: 20101130, end: 20111014

REACTIONS (2)
  - THERAPEUTIC RESPONSE DECREASED [None]
  - DRUG INEFFECTIVE [None]
